FAERS Safety Report 26049812 (Version 1)
Quarter: 2025Q4

REPORT INFORMATION
  Report Type: Report from Study
  Country: GB (occurrence: None)
  Receive Date: 20251115
  Receipt Date: 20251115
  Transmission Date: 20260119
  Serious: Yes (Other)
  Sender: UCB
  Company Number: GB-UCBSA-2025069699

PATIENT
  Age: 71 Year

DRUGS (2)
  1. CERTOLIZUMAB PEGOL [Suspect]
     Active Substance: CERTOLIZUMAB PEGOL
     Indication: Rheumatoid arthritis
     Dosage: 200 MILLIGRAM,EV 2 WEEKS(QOW)
  2. METHOTREXATE [Concomitant]
     Active Substance: METHOTREXATE
     Indication: Product used for unknown indication
     Dosage: UNK

REACTIONS (5)
  - Rheumatoid arthritis [Recovered/Resolved]
  - Loss of personal independence in daily activities [Unknown]
  - Incorrect dose administered [Unknown]
  - Device leakage [Unknown]
  - Device malfunction [Unknown]
